FAERS Safety Report 20721296 (Version 1)
Quarter: 2022Q2

REPORT INFORMATION
  Report Type: Spontaneous
  Country: US (occurrence: None)
  Receive Date: 20220416
  Receipt Date: 20220416
  Transmission Date: 20220721
  Serious: Yes (Hospitalization)
  Sender: FDA-Public Use
  Company Number: None

PATIENT
  Age: 71 Year
  Sex: Female

DRUGS (1)
  1. INSULIN ASPART [Suspect]
     Active Substance: INSULIN ASPART

REACTIONS (4)
  - Drug ineffective [None]
  - Product quality issue [None]
  - Suspected product quality issue [None]
  - Blood glucose increased [None]

NARRATIVE: CASE EVENT DATE: 20220412
